FAERS Safety Report 7368265-4 (Version None)
Quarter: 2011Q1

REPORT INFORMATION
  Report Type: 
  Country: None (occurrence: None)
  Receive Date: 20110323
  Receipt Date: 20091119
  Transmission Date: 20110831
  Serious: Yes (Other)
  Sender: FDA-Public Use
  Company Number: US-BAYER-200939937NA

PATIENT
  Sex: Female
  Weight: 79.365 kg

DRUGS (35)
  1. LOPRESSOR [Concomitant]
     Dosage: UNK
  2. DIOVAN [Concomitant]
     Indication: HYPERTENSION
     Dosage: UNK
     Dates: start: 20030101
  3. LORTAB [Concomitant]
     Indication: PAIN
     Dosage: UNK
     Route: 048
     Dates: start: 20030101
  4. TRASYLOL [Suspect]
     Indication: CORONARY ARTERY BYPASS
     Dosage: UNK
     Route: 042
     Dates: start: 20030702, end: 20030702
  5. NITROGLYCERIN [Concomitant]
     Dosage: 1 UNK, UNK
     Route: 061
     Dates: start: 20030628
  6. SPIRONOLACTONE [Concomitant]
     Indication: FLUID RETENTION
     Dosage: UNK
     Route: 048
     Dates: start: 20030101
  7. VERAPAMIL HCL A [Concomitant]
     Dosage: 5 MG, UNK
     Dates: start: 20030702
  8. NEO-SYNEPHRINOL [Concomitant]
     Dosage: UNK
     Route: 042
     Dates: start: 20030702
  9. LASIX [Concomitant]
     Indication: FLUID RETENTION
     Dosage: UNK
     Route: 048
     Dates: start: 20030101
  10. RED BLOOD CELLS [Concomitant]
     Dosage: UNK
     Route: 042
     Dates: start: 20030602
  11. VANCOMYCIN [Concomitant]
     Dosage: 2 G, UNK
     Route: 061
     Dates: start: 20030702
  12. HEPARIN [Concomitant]
     Dosage: 5000 U, UNK
     Route: 042
     Dates: start: 20030628
  13. TENECTEPLASE [Concomitant]
     Dosage: UNK
     Route: 042
     Dates: start: 20030628
  14. TOPROL-XL [Concomitant]
     Dosage: UNK
     Route: 048
     Dates: start: 20030101
  15. PAVULON [Concomitant]
     Dosage: UNK
     Dates: start: 20030702
  16. CARDIOPLEGIA [Concomitant]
     Dosage: 200 MG, UNK
     Route: 042
     Dates: start: 20030702
  17. NORMOSOL R [Concomitant]
     Dosage: 400 ML, UNK
     Dates: start: 20030702
  18. ASPIRIN [Concomitant]
     Dosage: UNK
     Route: 048
     Dates: start: 20030628
  19. ANCEF [Concomitant]
     Dosage: 2 G, UNK
     Route: 042
     Dates: start: 20030702
  20. ALTACE [Concomitant]
     Dosage: 5.0 MG, UNK
     Route: 048
     Dates: start: 20030628
  21. MORPHINE [Concomitant]
     Dosage: UNK
     Route: 042
  22. PEPCID [Concomitant]
     Route: 048
  23. LIPITOR [Concomitant]
     Dosage: 25 MG, BID
     Route: 048
  24. FENTANYL [Concomitant]
     Dosage: 15 ML, UNK
     Dates: start: 20030702
  25. CALCIUM CHLORIDE [Concomitant]
     Dosage: 7 G, UNK
     Dates: start: 20030702
  26. PROTAMINE SULFATE [Concomitant]
     Dosage: 290 MG, UNK
     Dates: start: 20030702
  27. VERSED [Concomitant]
     Dosage: 5 MG, UNK
     Dates: start: 20030702
  28. GENTAMICIN [Concomitant]
     Dosage: 80 MG, UNK
     Route: 061
     Dates: start: 20030702
  29. LIDOCAINE [Concomitant]
     Dosage: 200 MG, UNK
     Dates: start: 20030702
  30. CEFAZOLIN [Concomitant]
     Dosage: 2 G, UNK
     Route: 042
     Dates: start: 20030702
  31. HEPARIN [Concomitant]
     Dosage: 29100 U, UNK
     Route: 042
     Dates: start: 20030702
  32. PAPAVERINE [Concomitant]
     Dosage: 210 MG, UNK
     Dates: start: 20030702
  33. NITROGLYCERIN [Concomitant]
     Indication: VASODILATION PROCEDURE
     Dosage: 30 ML, UNK
     Dates: start: 20030702
  34. MANNITOL [Concomitant]
     Indication: VASODILATION PROCEDURE
     Dosage: 12.5 MG, UNK
     Route: 042
     Dates: start: 20030702
  35. SODIUM BICARBONATE [Concomitant]
     Dosage: 50 MEQ, UNK
     Dates: start: 20030702

REACTIONS (9)
  - RENAL FAILURE [None]
  - UNEVALUABLE EVENT [None]
  - INJURY [None]
  - ANXIETY [None]
  - DEPRESSION [None]
  - PAIN [None]
  - RENAL INJURY [None]
  - ANHEDONIA [None]
  - FEAR [None]
